FAERS Safety Report 5608972-4 (Version None)
Quarter: 2008Q1

REPORT INFORMATION
  Report Type: 
  Country: None (occurrence: None)
  Receive Date: 20080131
  Receipt Date: 20080125
  Transmission Date: 20080703
  Serious: Yes (Death, Life-Threatening, Other)
  Sender: FDA-Public Use
  Company Number: FRWYE369225JAN05

PATIENT
  Sex: Male
  Weight: 51 kg

DRUGS (7)
  1. GEMTUZUMAB OZOGAMICIN [Suspect]
     Indication: ACUTE MYELOID LEUKAEMIA
     Dosage: 4.8 MG EVERY 1 CYC
     Route: 042
     Dates: end: 20050104
  2. ETOPOSIDE [Concomitant]
     Dates: start: 20050105, end: 20050105
  3. VANCOMYCIN [Concomitant]
     Dosage: UNKNOWN
     Dates: start: 20050111
  4. AMIKLIN [Concomitant]
     Dosage: UNKNOWN
     Dates: start: 20050109
  5. FORTUM [Concomitant]
     Dosage: UNKNOWN
     Dates: start: 20050109
  6. ARACYTINE [Concomitant]
     Dates: start: 20050105, end: 20050105
  7. IDARUBICIN HCL [Concomitant]
     Dates: start: 20050105, end: 20050105

REACTIONS (5)
  - HEPATOTOXICITY [None]
  - MULTI-ORGAN FAILURE [None]
  - OLIGURIA [None]
  - RENAL FAILURE ACUTE [None]
  - VENOOCCLUSIVE LIVER DISEASE [None]
